FAERS Safety Report 6641366-1 (Version None)
Quarter: 2010Q1

REPORT INFORMATION
  Report Type: 
  Country: None (occurrence: None)
  Receive Date: 20100318
  Receipt Date: 20100218
  Transmission Date: 20100710
  Serious: Yes (Other)
  Sender: FDA-Public Use
  Company Number: PHHY2010CA09755

PATIENT
  Sex: Female

DRUGS (1)
  1. EXELON [Suspect]
     Indication: VASCULAR DEMENTIA
     Dosage: 10 MG, QD
     Route: 062
     Dates: start: 20090716, end: 20090922

REACTIONS (4)
  - DERMATITIS [None]
  - GENERALISED ERYTHEMA [None]
  - HYPERSENSITIVITY [None]
  - PRURITUS [None]
